FAERS Safety Report 4974322-X (Version None)
Quarter: 2006Q1

REPORT INFORMATION
  Report Type: 
  Country: None (occurrence: None)
  Receive Date: 20060227
  Receipt Date: 20051222
  Transmission Date: 20060701
  Serious: No
  Sender: FDA-Public Use
  Company Number: PHEH2005US13811

PATIENT
  Age: 49 Year
  Sex: Female

DRUGS (3)
  1. ENABLEX [Suspect]
     Indication: CYSTITIS
     Dates: start: 20051101
  2. IBUPROFEN [Concomitant]
  3. ELAVIL [Concomitant]

REACTIONS (1)
  - OEDEMA PERIPHERAL [None]
